FAERS Safety Report 23756678 (Version 1)
Quarter: 2024Q2

REPORT INFORMATION
  Report Type: Spontaneous
  Country: US (occurrence: US)
  Receive Date: 20240418
  Receipt Date: 20240418
  Transmission Date: 20240715
  Serious: Yes (Other)
  Sender: FDA-Public Use
  Company Number: US-SA-SAC20240415000367

PATIENT
  Age: 80 Year
  Sex: Male
  Weight: 105 kg

DRUGS (1)
  1. CAPRELSA [Suspect]
     Active Substance: VANDETANIB
     Indication: Thyroid cancer
     Dosage: 200 MG, QD
     Route: 048
     Dates: start: 20211129

REACTIONS (3)
  - Cataract [Unknown]
  - Macular degeneration [Unknown]
  - Corneal disorder [Unknown]
